FAERS Safety Report 19633499 (Version 1)
Quarter: 2021Q3

REPORT INFORMATION
  Report Type: Spontaneous
  Country: US (occurrence: US)
  Receive Date: 20210730
  Receipt Date: 20210730
  Transmission Date: 20211014
  Serious: No
  Sender: FDA-Public Use
  Company Number: US-009507513-2107USA002296

PATIENT
  Sex: Male

DRUGS (1)
  1. BELSOMRA [Suspect]
     Active Substance: SUVOREXANT
     Indication: SLEEP DISORDER
     Dosage: 10MG TAKE ONE AT BEDTIME AS NEEDED BY MOUTH
     Route: 048

REACTIONS (3)
  - Sleep disorder [Unknown]
  - Intentional product misuse [Unknown]
  - Therapeutic response shortened [Unknown]
